FAERS Safety Report 13495457 (Version 3)
Quarter: 2017Q2

REPORT INFORMATION
  Report Type: Spontaneous
  Country: US (occurrence: US)
  Receive Date: 20170428
  Receipt Date: 20170615
  Transmission Date: 20170830
  Serious: Yes (Death, Hospitalization, Other)
  Sender: FDA-Public Use
  Company Number: PHEH2017US012351

PATIENT
  Age: 58 Year
  Sex: Male
  Weight: 90 kg

DRUGS (2)
  1. ARAVA [Suspect]
     Active Substance: LEFLUNOMIDE
     Indication: PRODUCT USED FOR UNKNOWN INDICATION
     Dosage: 10 MG, UNK
     Route: 065
  2. COSENTYX [Suspect]
     Active Substance: SECUKINUMAB
     Indication: PSORIATIC ARTHROPATHY
     Dosage: 300 MG, QMO
     Route: 058
     Dates: start: 20161031, end: 20161230

REACTIONS (7)
  - Oedema [Fatal]
  - Generalised oedema [Unknown]
  - Procedural haemorrhage [Fatal]
  - Urine output decreased [Fatal]
  - Renal tubular necrosis [Fatal]
  - Confusional state [Fatal]
  - Lethargy [Fatal]

NARRATIVE: CASE EVENT DATE: 20161230
